FAERS Safety Report 13093099 (Version 1)
Quarter: 2017Q1

REPORT INFORMATION
  Report Type: Spontaneous
  Country: SE (occurrence: SE)
  Receive Date: 20170106
  Receipt Date: 20170106
  Transmission Date: 20170428
  Serious: Yes (Other)
  Sender: FDA-Public Use
  Company Number: SE-009507513-1701SWE001899

PATIENT
  Age: 21 Year
  Sex: Male

DRUGS (6)
  1. OLANZAPINE. [Suspect]
     Active Substance: OLANZAPINE
     Dosage: UNK
  2. MIRTAZAPINE. [Suspect]
     Active Substance: MIRTAZAPINE
  3. PROPAVAN [Suspect]
     Active Substance: PROPIOMAZINE
  4. IKTORIVIL [Suspect]
     Active Substance: CLONAZEPAM
  5. NOZINAN [Suspect]
     Active Substance: LEVOMEPROMAZINE
  6. ABILIFY [Suspect]
     Active Substance: ARIPIPRAZOLE

REACTIONS (2)
  - Toxicity to various agents [Recovered/Resolved]
  - Intentional self-injury [Recovered/Resolved]
